FAERS Safety Report 21806087 (Version 1)
Quarter: 2023Q1

REPORT INFORMATION
  Report Type: Spontaneous
  Country: NO (occurrence: NO)
  Receive Date: 20230102
  Receipt Date: 20230102
  Transmission Date: 20230417
  Serious: Yes (Hospitalization, Other)
  Sender: FDA-Public Use
  Company Number: NO-AMGEN-NORSP2022225831

PATIENT
  Age: 65 Year
  Sex: Male

DRUGS (1)
  1. KYPROLIS [Suspect]
     Active Substance: CARFILZOMIB
     Indication: Plasma cell myeloma
     Dosage: UNK
     Route: 065
     Dates: start: 202111

REACTIONS (7)
  - Thrombotic stroke [Recovering/Resolving]
  - Coronavirus infection [Recovering/Resolving]
  - Decreased immune responsiveness [Recovering/Resolving]
  - Illness [Recovering/Resolving]
  - Blood cholesterol increased [Recovering/Resolving]
  - Off label use [Unknown]
  - Hypertension [Recovering/Resolving]

NARRATIVE: CASE EVENT DATE: 20211101
